FAERS Safety Report 9365923 (Version 1)
Quarter: 2013Q2

REPORT INFORMATION
  Report Type: Spontaneous
  Country: CA (occurrence: US)
  Receive Date: 20130625
  Receipt Date: 20130625
  Transmission Date: 20140414
  Serious: No
  Sender: FDA-Public Use
  Company Number: CA-PFIZER INC-2013186111

PATIENT
  Sex: Male

DRUGS (2)
  1. ADVIL MIGRAINE [Suspect]
     Indication: MIGRAINE
     Dosage: 200 MG, EVERY FOUR HOURS
  2. ADVIL MIGRAINE [Suspect]
     Dosage: 200 MG, DAILY
     Dates: start: 201306

REACTIONS (1)
  - Drug ineffective [Unknown]
